FAERS Safety Report 12784392 (Version 1)
Quarter: 2016Q3

REPORT INFORMATION
  Report Type: Spontaneous
  Country: CA (occurrence: CA)
  Receive Date: 20160927
  Receipt Date: 20160927
  Transmission Date: 20161109
  Serious: Yes (Other)
  Sender: FDA-Public Use
  Company Number: CA-BEH-2013036680

PATIENT
  Age: 74 Year
  Sex: Male
  Weight: 110 kg

DRUGS (12)
  1. PANTOLOC [Concomitant]
     Active Substance: PANTOPRAZOLE SODIUM
  2. LIPITOR [Concomitant]
     Active Substance: ATORVASTATIN CALCIUM
     Dates: start: 20130516
  3. FERROUS SULFATE. [Concomitant]
     Active Substance: FERROUS SULFATE
  4. FLOMAX [Concomitant]
     Active Substance: TAMSULOSIN HYDROCHLORIDE
  5. PLAVIX [Concomitant]
     Active Substance: CLOPIDOGREL BISULFATE
  6. PRIVIGEN [Suspect]
     Active Substance: HUMAN IMMUNOGLOBULIN G
     Indication: TOXIC EPIDERMAL NECROLYSIS
     Route: 042
     Dates: start: 20130517, end: 20130517
  7. PRIVIGEN [Suspect]
     Active Substance: HUMAN IMMUNOGLOBULIN G
     Route: 042
     Dates: start: 20130517, end: 20130517
  8. NORVASC [Concomitant]
     Active Substance: AMLODIPINE BESYLATE
     Dates: start: 20130516
  9. PRIVIGEN [Suspect]
     Active Substance: HUMAN IMMUNOGLOBULIN G
     Route: 042
     Dates: start: 20130515, end: 20130517
  10. BISOPROLOL [Concomitant]
     Active Substance: BISOPROLOL
     Dates: start: 20130516
  11. LASIX [Concomitant]
     Active Substance: FUROSEMIDE
  12. PRIVIGEN [Suspect]
     Active Substance: HUMAN IMMUNOGLOBULIN G
     Indication: SEPSIS
     Route: 042
     Dates: start: 20130517, end: 20130517

REACTIONS (4)
  - Pseudohyponatraemia [Recovered/Resolved]
  - Haemolysis [Recovered/Resolved]
  - Anti-erythrocyte antibody positive [Recovered/Resolved]
  - Hyponatraemia [Recovered/Resolved]

NARRATIVE: CASE EVENT DATE: 20130517
